FAERS Safety Report 7786104-4 (Version None)
Quarter: 2011Q3

REPORT INFORMATION
  Report Type: 
  Country: None (occurrence: None)
  Receive Date: 20110929
  Receipt Date: 20110922
  Transmission Date: 20111222
  Serious: Yes (Other)
  Sender: FDA-Public Use
  Company Number: US-AMGEN-USASP2011046449

PATIENT
  Age: 27 Year
  Sex: Female

DRUGS (4)
  1. ENBREL [Suspect]
     Indication: ANKYLOSING SPONDYLITIS
     Dosage: 50 MG, QWK
  2. CLOMID [Concomitant]
  3. PRENATAL VITAMINS                  /01549301/ [Concomitant]
     Route: 058
  4. ENBREL [Suspect]

REACTIONS (2)
  - AMNIOCENTESIS ABNORMAL [None]
  - STILLBIRTH [None]
